FAERS Safety Report 17434153 (Version 1)
Quarter: 2020Q1

REPORT INFORMATION
  Report Type: Spontaneous
  Country: US (occurrence: US)
  Receive Date: 20200204
  Receipt Date: 20200204
  Transmission Date: 20200409
  Serious: No
  Sender: FDA-Public Use
  Company Number: None

PATIENT
  Age: 58 Year
  Sex: Female

DRUGS (2)
  1. HARVONI [Concomitant]
     Active Substance: LEDIPASVIR\SOFOSBUVIR
  2. RIBAVIRIN TAB 200MG [Suspect]
     Active Substance: RIBAVIRIN
     Route: 048
     Dates: start: 202001

REACTIONS (1)
  - Nausea [None]

NARRATIVE: CASE EVENT DATE: 20200203
